FAERS Safety Report 17244501 (Version 1)
Quarter: 2020Q1

REPORT INFORMATION
  Report Type: Report from Study
  Country: CA (occurrence: CA)
  Receive Date: 20200107
  Receipt Date: 20200107
  Transmission Date: 20200409
  Serious: Yes (Other)
  Sender: FDA-Public Use
  Company Number: CA-BEH-2020111322

PATIENT
  Age: 75 Year
  Sex: Male

DRUGS (5)
  1. AZOPT [Concomitant]
     Active Substance: BRINZOLAMIDE
  2. ELIQUIS [Concomitant]
     Active Substance: APIXABAN
  3. HIZENTRA [Suspect]
     Active Substance: HUMAN IMMUNOGLOBULIN G
     Indication: SECONDARY IMMUNODEFICIENCY
     Dosage: 20 GRAM, QW
     Route: 058
     Dates: start: 20170206
  4. BISOPROLOL [Concomitant]
     Active Substance: BISOPROLOL
  5. TAMSULOSIN [Concomitant]
     Active Substance: TAMSULOSIN

REACTIONS (1)
  - Drug ineffective [Unknown]
